FAERS Safety Report 21653203 (Version 1)
Quarter: 2022Q4

REPORT INFORMATION
  Report Type: Spontaneous
  Country: DE (occurrence: DE)
  Receive Date: 20221128
  Receipt Date: 20221128
  Transmission Date: 20230112
  Serious: Yes (Other)
  Sender: FDA-Public Use
  Company Number: DE-002147023-NVSC2022DE264130

PATIENT
  Age: 45 Year
  Sex: Female

DRUGS (1)
  1. HALOPERIDOL [Suspect]
     Active Substance: HALOPERIDOL
     Indication: Depression
     Dosage: UNK, UNKNOWN
     Route: 065

REACTIONS (2)
  - Dystonia [Not Recovered/Not Resolved]
  - Product use in unapproved indication [Unknown]
